FAERS Safety Report 18026039 (Version 1)
Quarter: 2020Q3

REPORT INFORMATION
  Report Type: Spontaneous
  Country: US (occurrence: US)
  Receive Date: 20200715
  Receipt Date: 20200715
  Transmission Date: 20201103
  Serious: Yes (Other)
  Sender: FDA-Public Use
  Company Number: NVSC2020US197668

PATIENT
  Age: 55 Year
  Sex: Male

DRUGS (3)
  1. TRIAMCINOLONE ACETONIDE. [Suspect]
     Active Substance: TRIAMCINOLONE ACETONIDE
     Indication: SYNOVIAL CYST
     Dosage: TWO INJECTIONS
     Route: 065
  2. FLUTICASONE. [Concomitant]
     Active Substance: FLUTICASONE
     Indication: NASAL CONGESTION
     Dosage: UNK
     Route: 045
  3. COBICISTAT [Interacting]
     Active Substance: COBICISTAT
     Indication: HIV INFECTION
     Dosage: UNK
     Route: 065

REACTIONS (4)
  - Cushing^s syndrome [Recovering/Resolving]
  - Pulmonary embolism [Unknown]
  - Drug interaction [Unknown]
  - Deep vein thrombosis [Unknown]
